FAERS Safety Report 10929696 (Version 1)
Quarter: 2015Q1

REPORT INFORMATION
  Report Type: Spontaneous
  Country: TR (occurrence: TR)
  Receive Date: 20150319
  Receipt Date: 20150319
  Transmission Date: 20150721
  Serious: Yes (Other)
  Sender: FDA-Public Use
  Company Number: TR-PFIZER INC-2015095691

PATIENT
  Age: 11 Year
  Sex: Female

DRUGS (2)
  1. GENOTROPIN GOQUICK [Suspect]
     Active Substance: SOMATROPIN
     Indication: GROWTH HORMONE DEFICIENCY
     Dosage: 5.4 MG, WEEKLY
  2. GENOTROPIN GOQUICK [Suspect]
     Active Substance: SOMATROPIN
     Indication: PRADER-WILLI SYNDROME

REACTIONS (4)
  - Lower limb fracture [Unknown]
  - Fall [Unknown]
  - Drug ineffective [Unknown]
  - Osteolysis [Unknown]
